FAERS Safety Report 7056199-4 (Version None)
Quarter: 2010Q4

REPORT INFORMATION
  Report Type: 
  Country: None (occurrence: None)
  Receive Date: 20101021
  Receipt Date: 20101019
  Transmission Date: 20110411
  Serious: Yes (Hospitalization)
  Sender: FDA-Public Use
  Company Number: FR-WYE-G06719310

PATIENT
  Age: 60 Year
  Sex: Male

DRUGS (7)
  1. PIPERACILLIN AND TAZOBACTAM [Suspect]
     Dosage: UNKNOWN
     Route: 042
     Dates: start: 20100622, end: 20100625
  2. MORPHINE [Concomitant]
     Dosage: 10 MG/ON DEMAND
     Route: 048
  3. VANCOMYCIN [Suspect]
     Dosage: UNKNOWN
     Route: 042
     Dates: start: 20100602, end: 20100701
  4. GENTALLINE [Suspect]
     Dosage: UNKNOWN
     Route: 042
     Dates: start: 20100625, end: 20100627
  5. RIFADIN [Suspect]
     Dosage: UNKNOWN
     Route: 042
     Dates: start: 20100603, end: 20100705
  6. TRIFLUCAN [Concomitant]
     Indication: CANDIDIASIS
     Route: 048
     Dates: start: 20100625
  7. BRISTOPEN [Suspect]
     Dosage: UNKNOWN
     Route: 042
     Dates: start: 20100625, end: 20100627

REACTIONS (6)
  - CANDIDA SEPSIS [None]
  - DERMATITIS BULLOUS [None]
  - DERMATITIS EXFOLIATIVE [None]
  - DEVICE RELATED SEPSIS [None]
  - MUCOSA VESICLE [None]
  - TOXIC SKIN ERUPTION [None]
